FAERS Safety Report 19284355 (Version 2)
Quarter: 2022Q1

REPORT INFORMATION
  Report Type: Spontaneous
  Country: US (occurrence: US)
  Receive Date: 20210521
  Receipt Date: 20220117
  Transmission Date: 20220424
  Serious: No
  Sender: FDA-Public Use
  Company Number: US-SA-SAC20210513000913

PATIENT
  Age: 13 Year
  Sex: Female

DRUGS (1)
  1. FABRAZYME [Suspect]
     Active Substance: AGALSIDASE BETA
     Indication: Fabry^s disease
     Dosage: 35 MG, QOW
     Route: 042
     Dates: start: 20191105

REACTIONS (4)
  - Injection site pain [Unknown]
  - Exposure to SARS-CoV-2 [Unknown]
  - Crying [Unknown]
  - Needle issue [Unknown]

NARRATIVE: CASE EVENT DATE: 20210430
